FAERS Safety Report 14714063 (Version 1)
Quarter: 2018Q2

REPORT INFORMATION
  Report Type: Spontaneous
  Country: GB (occurrence: GB)
  Receive Date: 20180404
  Receipt Date: 20180404
  Transmission Date: 20180711
  Serious: Yes (Life-Threatening, Hospitalization, Disabling)
  Sender: FDA-Public Use
  Company Number: IND-GB-009507513-1803GBR011865

PATIENT
  Age: 33 Year

DRUGS (10)
  1. TESTOSTERONE UNDECANOATE [Suspect]
     Active Substance: TESTOSTERONE UNDECANOATE
     Dosage: 350MG/ML.
  2. TRENBOLONE ACETATE [Suspect]
     Active Substance: TRENBOLONE ACETATE
     Dosage: 200MG/ML.
  3. PHOENIX NUTRITIONALS GLUCOCRAVE XTREME [Suspect]
     Active Substance: DIETARY SUPPLEMENT
     Dosage: 10ML VIAL OF 400MG/ML INCLUDING: 150MG TEST E, 150MG TREN E AND 100MG MAST E.
  4. TESTOSTERONE CYPIONATE. [Suspect]
     Active Substance: TESTOSTERONE CYPIONATE
  5. PROVIRON (MESTEROLONE) [Suspect]
     Active Substance: MESTEROLONE
     Dosage: 300MG/ML
  6. DROMOSTANOLONE PROPIONATE [Suspect]
     Active Substance: DROMOSTANOLONE PROPIONATE
  7. TESTOSTERONE ENANTHATE. [Suspect]
     Active Substance: TESTOSTERONE ENANTHATE
     Dosage: 300MG/ML.
  8. ANAVAR [Suspect]
     Active Substance: OXANDROLONE
  9. ANABOLIC STEROID (UNSPECIFIED) [Suspect]
     Active Substance: UNSPECIFIED INGREDIENT
     Dosage: 240MG/ML.
  10. TRENBOLONE ACETATE [Suspect]
     Active Substance: TRENBOLONE ACETATE
     Dosage: 100MG/ML.

REACTIONS (3)
  - Syncope [Recovered/Resolved]
  - Cerebral haemorrhage [Recovered/Resolved]
  - Generalised tonic-clonic seizure [Recovered/Resolved]

NARRATIVE: CASE EVENT DATE: 20171012
